FAERS Safety Report 13775879 (Version 4)
Quarter: 2017Q4

REPORT INFORMATION
  Report Type: Report from Study
  Country: CA (occurrence: CA)
  Receive Date: 20170720
  Receipt Date: 20171230
  Transmission Date: 20180320
  Serious: Yes (Other)
  Sender: FDA-Public Use
  Company Number: PHHY2017CA104638

PATIENT
  Age: 61 Year
  Sex: Female
  Weight: 94 kg

DRUGS (6)
  1. TASIGNA [Suspect]
     Active Substance: NILOTINIB
     Indication: CHRONIC MYELOID LEUKAEMIA
     Dosage: 300 MG, BID
     Route: 048
     Dates: start: 20170627, end: 20170704
  2. TASIGNA [Suspect]
     Active Substance: NILOTINIB
     Dosage: 300 MG, BID
     Route: 048
     Dates: start: 20170801
  3. TASIGNA [Suspect]
     Active Substance: NILOTINIB
     Dosage: 400 MG, BID
     Route: 048
     Dates: start: 201710
  4. TASIGNA [Suspect]
     Active Substance: NILOTINIB
     Dosage: 300 MG, BID
     Route: 048
  5. TASIGNA [Suspect]
     Active Substance: NILOTINIB
     Dosage: 300 MG, QD IN MORNING
     Route: 048
     Dates: start: 20170715
  6. TASIGNA [Suspect]
     Active Substance: NILOTINIB
     Dosage: 450 MG, QD
     Route: 048
     Dates: start: 20170721

REACTIONS (16)
  - Back pain [Recovering/Resolving]
  - Therapeutic response decreased [Unknown]
  - Gait inability [Unknown]
  - Anxiety [Unknown]
  - Dyspnoea [Unknown]
  - Weight increased [Unknown]
  - Thyroid disorder [Unknown]
  - Pain in extremity [Unknown]
  - Stress [Unknown]
  - Arthralgia [Recovering/Resolving]
  - Platelet count decreased [Unknown]
  - Fatigue [Unknown]
  - Sleep disorder [Unknown]
  - Muscle spasms [Unknown]
  - Contusion [Unknown]
  - Abdominal discomfort [Unknown]

NARRATIVE: CASE EVENT DATE: 20170712
